FAERS Safety Report 9032187 (Version 2)
Quarter: 2013Q2

REPORT INFORMATION
  Report Type: Spontaneous
  Country: FR (occurrence: FR)
  Receive Date: 20130122
  Receipt Date: 20130621
  Transmission Date: 20140414
  Serious: Yes (Hospitalization, Other)
  Sender: FDA-Public Use
  Company Number: FR-PFIZER INC-2013024333

PATIENT
  Age: 82 Year
  Sex: Male
  Weight: 110 kg

DRUGS (7)
  1. CORDARONE [Suspect]
     Dosage: 1200 MG, DAILY
     Route: 048
     Dates: start: 20121204, end: 20121205
  2. TAHOR [Suspect]
     Dosage: 40 MG, DAILY
     Route: 048
     Dates: end: 20121207
  3. CLAFORAN [Suspect]
     Indication: BRONCHITIS
     Dosage: 1 G, 3X/DAY
     Route: 042
     Dates: start: 20121202, end: 20121207
  4. CALCIPARINE [Concomitant]
     Dosage: 5000 IU, 2X/DAY
  5. KARDEGIC [Concomitant]
     Dosage: 75 MG, DAILY
  6. PLAVIX [Concomitant]
     Dosage: 75 MG, DAILY
  7. SERETIDE [Concomitant]
     Dosage: 500 UG, 2X/DAY

REACTIONS (3)
  - Hepatocellular injury [Recovering/Resolving]
  - Cholestasis [Unknown]
  - Blood creatinine increased [Unknown]
